FAERS Safety Report 6567298-5 (Version None)
Quarter: 2010Q1

REPORT INFORMATION
  Report Type: 
  Country: None (occurrence: None)
  Receive Date: 20100202
  Receipt Date: 20100120
  Transmission Date: 20100710
  Serious: Yes (Other)
  Sender: FDA-Public Use
  Company Number: PHHY2010GB04235

PATIENT
  Age: 9 Year
  Sex: Male

DRUGS (4)
  1. CARBAMAZEPINE [Suspect]
     Indication: EPILEPSY
     Dosage: 300 MG PER DAY
     Dates: start: 20090401
  2. EQUASYM [Interacting]
     Indication: ATTENTION DEFICIT/HYPERACTIVITY DISORDER
     Dosage: 20 MG PER DAY
     Dates: start: 20070301, end: 20081101
  3. EQUASYM [Interacting]
     Dosage: 30 MG PER DAY
     Dates: start: 20090401
  4. EQUASYM [Interacting]
     Dosage: 40 MG PER DAY
     Dates: start: 20090701

REACTIONS (7)
  - ABNORMAL BEHAVIOUR [None]
  - ATTENTION DEFICIT/HYPERACTIVITY DISORDER [None]
  - CONCOMITANT DISEASE AGGRAVATED [None]
  - CONVULSION [None]
  - DRUG INEFFECTIVE [None]
  - DRUG INTERACTION [None]
  - RESTLESSNESS [None]
